FAERS Safety Report 15682648 (Version 2)
Quarter: 2019Q1

REPORT INFORMATION
  Report Type: Spontaneous
  Country: US (occurrence: US)
  Receive Date: 20181203
  Receipt Date: 20190204
  Transmission Date: 20190417
  Serious: Yes (Hospitalization, Other)
  Sender: FDA-Public Use
  Company Number: US-OTSUKA-2018_016031

PATIENT
  Sex: Female

DRUGS (12)
  1. LITHOBID [Suspect]
     Active Substance: LITHIUM CARBONATE
     Indication: PRODUCT USED FOR UNKNOWN INDICATION
     Dosage: 300 MG, BID
     Route: 048
  2. XANAX [Suspect]
     Active Substance: ALPRAZOLAM
     Indication: ANXIETY
     Dosage: 0.25 MG, BID
     Route: 048
  3. ABILIFY [Suspect]
     Active Substance: ARIPIPRAZOLE
     Indication: MAJOR DEPRESSION
  4. DEPAKOTE [Suspect]
     Active Substance: DIVALPROEX SODIUM
     Indication: PRODUCT USED FOR UNKNOWN INDICATION
     Dosage: UNK
     Route: 065
  5. ABILIFY [Suspect]
     Active Substance: ARIPIPRAZOLE
     Indication: ANXIETY
  6. XANAX [Suspect]
     Active Substance: ALPRAZOLAM
     Dosage: 0.5 MG, BID
     Route: 048
  7. TRILEPTAL [Suspect]
     Active Substance: OXCARBAZEPINE
     Indication: PRODUCT USED FOR UNKNOWN INDICATION
     Dosage: 300 MG, BID
     Route: 048
  8. SEROQUEL [Suspect]
     Active Substance: QUETIAPINE FUMARATE
     Indication: PRODUCT USED FOR UNKNOWN INDICATION
     Dosage: 100 MG, QD
     Route: 048
  9. SEROQUEL [Suspect]
     Active Substance: QUETIAPINE FUMARATE
     Dosage: 200 MG, QD
     Route: 048
  10. ABILIFY [Suspect]
     Active Substance: ARIPIPRAZOLE
     Indication: BIPOLAR DISORDER
     Dosage: 5-30 MG, QD
     Route: 065
     Dates: start: 2002, end: 201502
  11. ABILIFY [Suspect]
     Active Substance: ARIPIPRAZOLE
     Indication: POST-TRAUMATIC STRESS DISORDER
  12. LITHOBID [Suspect]
     Active Substance: LITHIUM CARBONATE
     Dosage: 300 MG, QID
     Route: 048

REACTIONS (46)
  - Nausea [Unknown]
  - Pancytopenia [Unknown]
  - Compulsive shopping [Recovered/Resolved]
  - Anxiety [Unknown]
  - Loss of employment [Unknown]
  - Sepsis [Unknown]
  - Anhedonia [Unknown]
  - Ankle fracture [Unknown]
  - Emotional distress [Unknown]
  - Myalgia [Unknown]
  - Mental disorder [Unknown]
  - Foot fracture [Unknown]
  - Urinary tract infection [Unknown]
  - Oropharyngeal pain [Unknown]
  - Loss of consciousness [Unknown]
  - Rash [Unknown]
  - Diarrhoea [Unknown]
  - Economic problem [Unknown]
  - Gastroenteritis viral [Unknown]
  - Malaise [Unknown]
  - Fatigue [Unknown]
  - Divorced [Unknown]
  - Myelodysplastic syndrome [Unknown]
  - B-cell lymphoma [Unknown]
  - Pneumonia [Unknown]
  - Injury [Unknown]
  - Cough [Unknown]
  - Fall [Unknown]
  - Compulsive sexual behaviour [Recovered/Resolved]
  - Constipation [Unknown]
  - Gambling disorder [Recovered/Resolved]
  - Suicidal ideation [Recovered/Resolved]
  - Nipple infection [Unknown]
  - Peripheral swelling [Unknown]
  - Bronchitis [Unknown]
  - Dyspnoea [Unknown]
  - Pain [Unknown]
  - Obsessive-compulsive disorder [Unknown]
  - Product use in unapproved indication [Unknown]
  - Suicide attempt [Recovered/Resolved]
  - Chest pain [Unknown]
  - Vomiting [Unknown]
  - Condition aggravated [Recovered/Resolved]
  - Eye discharge [Unknown]
  - Arthralgia [Unknown]
  - Headache [Unknown]

NARRATIVE: CASE EVENT DATE: 20120913
